FAERS Safety Report 4598972-8 (Version None)
Quarter: 2005Q1

REPORT INFORMATION
  Report Type: 
  Country: None (occurrence: None)
  Receive Date: 20050304
  Receipt Date: 20041202
  Transmission Date: 20050727
  Serious: Yes (Life-Threatening, Hospitalization, Other)
  Sender: FDA-Public Use
  Company Number: US-MERCK-0412USA00445

PATIENT
  Age: 64 Year
  Sex: Female

DRUGS (9)
  1. FOSAMAX [Suspect]
     Indication: OSTEOPOROSIS
     Route: 048
     Dates: start: 20040603, end: 20040606
  2. GLUCOPHAGE [Concomitant]
     Indication: DIABETES MELLITUS
     Route: 048
  3. GLYBURIDE [Concomitant]
     Route: 065
  4. VERAPAMIL [Concomitant]
     Indication: HYPERTENSION
     Route: 048
  5. ATENOLOL [Concomitant]
     Indication: HYPERTENSION
     Route: 048
  6. ZYRTEC [Concomitant]
     Indication: URTICARIA CHRONIC
     Route: 048
  7. CALCIUM (UNSPECIFIED) [Concomitant]
     Route: 065
  8. VITAMIN D (UNSPECIFIED) [Concomitant]
     Route: 065
  9. HYDROXYZINE HYDROCHLORIDE [Concomitant]
     Route: 065

REACTIONS (6)
  - ARTHRALGIA [None]
  - BACK PAIN [None]
  - CHEST PAIN [None]
  - CONTRAST MEDIA REACTION [None]
  - MYALGIA [None]
  - PULMONARY EMBOLISM [None]
